FAERS Safety Report 7494361-7 (Version None)
Quarter: 2011Q2

REPORT INFORMATION
  Report Type: 
  Country: None (occurrence: None)
  Receive Date: 20110520
  Receipt Date: 20110518
  Transmission Date: 20111010
  Serious: Yes (Other)
  Sender: FDA-Public Use
  Company Number: US-MERCK-1105USA02934

PATIENT
  Sex: Female

DRUGS (1)
  1. VYTORIN [Suspect]
     Route: 048

REACTIONS (9)
  - BARRETT'S OESOPHAGUS [None]
  - LIPIDS INCREASED [None]
  - CARDIAC VALVE DISEASE [None]
  - GASTRITIS EROSIVE [None]
  - LACTOSE INTOLERANCE [None]
  - FOOD ALLERGY [None]
  - DIVERTICULUM [None]
  - DIABETES MELLITUS [None]
  - GOUT [None]
